FAERS Safety Report 11359607 (Version 1)
Quarter: 2015Q3

REPORT INFORMATION
  Report Type: Spontaneous
  Country: US (occurrence: US)
  Receive Date: 20150807
  Receipt Date: 20150807
  Transmission Date: 20151125
  Serious: No
  Sender: FDA-Public Use
  Company Number: US-ASTRAZENECA-2015SE73801

PATIENT
  Sex: Female

DRUGS (1)
  1. SYMBICORT [Suspect]
     Active Substance: BUDESONIDE\FORMOTEROL FUMARATE DIHYDRATE
     Dosage: 160 OVER 4.5 2 PUFFS TWICE A DAY
     Route: 055

REACTIONS (3)
  - Cough [Unknown]
  - Intentional product use issue [Unknown]
  - Product quality issue [Unknown]
